FAERS Safety Report 21615154 (Version 4)
Quarter: 2023Q1

REPORT INFORMATION
  Report Type: Spontaneous
  Country: IN (occurrence: IN)
  Receive Date: 20221118
  Receipt Date: 20230329
  Transmission Date: 20230417
  Serious: Yes (Other)
  Sender: FDA-Public Use
  Company Number: IN-PFIZER INC-PV202200057457

PATIENT
  Age: 41 Year
  Sex: Female

DRUGS (3)
  1. LORLATINIB [Suspect]
     Active Substance: LORLATINIB
     Indication: Lung adenocarcinoma stage IV
     Dosage: 100 MG
     Route: 048
  2. LORLATINIB [Suspect]
     Active Substance: LORLATINIB
     Dosage: 100 MG, 1X/DAY
     Route: 048
  3. ROSUVASTATIN CALCIUM [Concomitant]
     Active Substance: ROSUVASTATIN CALCIUM
     Dosage: 3 T

REACTIONS (7)
  - Spinal cord disorder [Unknown]
  - Spinal cord compression [Unknown]
  - Thyroxine increased [Unknown]
  - Blood cholesterol increased [Unknown]
  - Constipation [Unknown]
  - Myopathy [Unknown]
  - Neoplasm progression [Unknown]
